FAERS Safety Report 6180751-1 (Version None)
Quarter: 2009Q2

REPORT INFORMATION
  Report Type: 
  Country: None (occurrence: None)
  Receive Date: 20090506
  Receipt Date: 20090428
  Transmission Date: 20091009
  Serious: Yes (Hospitalization)
  Sender: FDA-Public Use
  Company Number: US-ASTRAZENECA-2009UW10576

PATIENT
  Age: 73 Year
  Sex: Male

DRUGS (12)
  1. CASODEX [Suspect]
     Indication: PROSTATE CANCER
     Route: 048
     Dates: start: 20090202
  2. DOCETAXEL [Suspect]
     Indication: PROSTATE CANCER
     Route: 042
     Dates: start: 20090204, end: 20090317
  3. DOCETAXEL [Suspect]
     Route: 042
     Dates: start: 20090407
  4. DOCETAXEL [Suspect]
     Route: 042
     Dates: start: 20090407
  5. ZOLADEX [Suspect]
     Indication: PROSTATE CANCER
     Route: 058
     Dates: start: 20090204
  6. OLMESARTAN MEDOXOMIL AND HYDROCHLOROTHIZIDE [Concomitant]
  7. METFORMIN HCL [Concomitant]
  8. SIMVASTATIN [Concomitant]
  9. FELODIPINE [Concomitant]
  10. DIAMICRON [Concomitant]
  11. DISPRIN [Concomitant]
  12. NYSTATIN [Concomitant]

REACTIONS (1)
  - LOWER RESPIRATORY TRACT INFECTION [None]
